FAERS Safety Report 6428352-1 (Version None)
Quarter: 2009Q4

REPORT INFORMATION
  Report Type: 
  Country: None (occurrence: None)
  Receive Date: 20091102
  Receipt Date: 20091020
  Transmission Date: 20100525
  Serious: Yes (Other)
  Sender: FDA-Public Use
  Company Number: JP-2009-1673

PATIENT
  Age: 64 Year
  Sex: Male

DRUGS (5)
  1. NAVELBINE [Suspect]
     Indication: LUNG NEOPLASM MALIGNANT
     Dosage: 35 MG IV
     Route: 042
     Dates: start: 20090610
  2. RANDA [Concomitant]
  3. DECADRON [Concomitant]
  4. KYTRIL. MFR: NOT SPECIFIED [Concomitant]
  5. SOLDEM 3A [Concomitant]

REACTIONS (2)
  - RASH [None]
  - URTICARIA [None]
